FAERS Safety Report 7111805-0 (Version None)
Quarter: 2010Q4

REPORT INFORMATION
  Report Type: 
  Country: None (occurrence: None)
  Receive Date: 20101119
  Receipt Date: 20101110
  Transmission Date: 20110411
  Serious: Yes (Other)
  Sender: FDA-Public Use
  Company Number: US-BIOGENIDEC-2010BI039704

PATIENT
  Age: 63 Year
  Sex: Male
  Weight: 80 kg

DRUGS (15)
  1. TYSABRI [Suspect]
     Indication: MULTIPLE SCLEROSIS
     Route: 042
     Dates: start: 20080430
  2. 4 AP [Concomitant]
     Indication: FATIGUE
     Route: 048
     Dates: start: 20090416
  3. AMANTADINE [Concomitant]
     Indication: FATIGUE
     Route: 048
     Dates: start: 20080414
  4. ARICEPT [Concomitant]
     Indication: MEMORY IMPAIRMENT
     Route: 048
     Dates: start: 20081229
  5. ARTANE [Concomitant]
     Indication: PARKINSON'S DISEASE
     Route: 048
     Dates: start: 20091216
  6. BACLOFEN [Concomitant]
     Indication: MUSCLE SPASMS
     Route: 048
     Dates: start: 20070607
  7. BENICAR [Concomitant]
     Indication: HYPERTENSION
     Route: 048
     Dates: start: 20070518
  8. CELEXA [Concomitant]
     Indication: DEPRESSION
     Route: 048
     Dates: start: 20100812
  9. COZAAR [Concomitant]
     Indication: HYPERTENSION
     Route: 048
     Dates: start: 20100816
  10. DETROL LA [Concomitant]
     Indication: URINARY INCONTINENCE
     Route: 048
     Dates: start: 20091007
  11. FLOMAX [Concomitant]
     Indication: BENIGN PROSTATIC HYPERPLASIA
     Route: 048
     Dates: start: 20101025
  12. HYDROCODONE [Concomitant]
     Indication: HEADACHE
     Route: 048
     Dates: start: 20091216
  13. NEURONTIN [Concomitant]
     Indication: NEUROPATHY PERIPHERAL
     Route: 048
     Dates: start: 20080414
  14. OMEPRAZOLE [Concomitant]
     Indication: GASTROOESOPHAGEAL REFLUX DISEASE
     Route: 048
     Dates: start: 20101025
  15. VIMPAT [Concomitant]
     Indication: NEUROPATHY PERIPHERAL
     Route: 048
     Dates: start: 20101025

REACTIONS (1)
  - SQUAMOUS CELL CARCINOMA OF SKIN [None]
